FAERS Safety Report 5843758-7 (Version None)
Quarter: 2008Q3

REPORT INFORMATION
  Report Type: 
  Country: None (occurrence: None)
  Receive Date: 20080813
  Receipt Date: 20080701
  Transmission Date: 20090109
  Serious: No
  Sender: FDA-Public Use
  Company Number: US-BRISTOL-MYERS SQUIBB COMPANY-14246904

PATIENT
  Sex: Female

DRUGS (3)
  1. IXEMPRA KIT [Suspect]
     Dosage: DRUG INTERRUPTED AND RESTARTED.
     Dates: start: 20080701
  2. H1 ANTAGONIST [Concomitant]
     Indication: PREMEDICATION
  3. H2 ANTAGONIST [Concomitant]
     Indication: PREMEDICATION

REACTIONS (4)
  - DIARRHOEA [None]
  - DYSPNOEA [None]
  - ERYTHEMA [None]
  - OCULAR HYPERAEMIA [None]
